FAERS Safety Report 9578574 (Version 1)
Quarter: 2013Q4

REPORT INFORMATION
  Report Type: Spontaneous
  Country: US (occurrence: US)
  Receive Date: 20131001
  Receipt Date: 20131001
  Transmission Date: 20140711
  Serious: No
  Sender: FDA-Public Use
  Company Number: US-AMGEN-USASP2013013658

PATIENT
  Sex: Female
  Weight: 86.17 kg

DRUGS (6)
  1. ENBREL [Suspect]
     Indication: PSORIASIS
     Dosage: 50 MG, QWK
     Route: 058
  2. DESONIDE [Concomitant]
     Dosage: 0.05 %, UNK
  3. METFORMIN [Concomitant]
     Dosage: 500 MG, UNK
  4. LISINOPRIL [Concomitant]
     Dosage: 30 MG, UNK
  5. MULTIVITAMINS, PLAIN [Concomitant]
     Dosage: UNK
  6. CLOBETASOL [Concomitant]
     Dosage: 0.05 %, UNK

REACTIONS (1)
  - Pharyngitis streptococcal [Unknown]
